FAERS Safety Report 8111139-1 (Version None)
Quarter: 2012Q1

REPORT INFORMATION
  Report Type: 
  Country: None (occurrence: None)
  Receive Date: 20120203
  Receipt Date: 20110511
  Transmission Date: 20120608
  Serious: No
  Sender: FDA-Public Use
  Company Number: US-GLAXOSMITHKLINE-A0927312A

PATIENT
  Sex: Female

DRUGS (2)
  1. BENADRYL [Concomitant]
  2. LAMOTRIGINE [Suspect]
     Indication: BIPOLAR DISORDER
     Route: 048

REACTIONS (3)
  - URTICARIA [None]
  - RASH [None]
  - PRURITUS [None]
